FAERS Safety Report 13391790 (Version 2)
Quarter: 2017Q2

REPORT INFORMATION
  Report Type: Report from Study
  Country: None (occurrence: NL)
  Receive Date: 20170331
  Receipt Date: 20170407
  Transmission Date: 20170830
  Serious: Yes (Other)
  Sender: FDA-Public Use
  Company Number: NL-ABBVIE-17P-114-1928040-00

PATIENT
  Age: 75 Year
  Sex: Male

DRUGS (1)
  1. DUODOPA [Suspect]
     Active Substance: CARBIDOPA\LEVODOPA
     Indication: PARKINSON^S DISEASE
     Dosage: MD: 12, CD: 3.7, ED: 2.5
     Route: 050
     Dates: start: 20111013, end: 20170328

REACTIONS (7)
  - Incorrect route of drug administration [Recovered/Resolved]
  - Adhesion [Not Recovered/Not Resolved]
  - Device loosening [Unknown]
  - Complication of device insertion [Unknown]
  - Device dislocation [Not Recovered/Not Resolved]
  - Device dislocation [Unknown]
  - Intestinal obstruction [Not Recovered/Not Resolved]

NARRATIVE: CASE EVENT DATE: 20170326
